FAERS Safety Report 7602784 (Version 8)
Quarter: 2012Q4

REPORT INFORMATION
  Report Type: Report from Study
  Country: US (occurrence: None)
  Receive Date: 20100823
  Receipt Date: 20120828
  Transmission Date: 20130627
  Serious: Yes (Death, Life-Threatening, Hospitalization, Other)
  Sender: FDA-Public Use
  Company Number: 010975

PATIENT
  Age: 25 Year
  Sex: Male

DRUGS (37)
  1. BUSULFAN [Suspect]
     Indication: STEM CELL TRANSPLANT
     Dosage: 0.8 MG/KG, DAILY DOSE, INTRAVENOUS ; 270 MG, DAILY DOSE, INTRAVENOUS
     Route: 042
     Dates: start: 20100809, end: 20100812
  2. BUSULFAN [Suspect]
     Indication: STEM CELL TRANSPLANT
     Dosage: 0.8 MG/KG, DAILY DOSE, INTRAVENOUS ; 270 MG, DAILY DOSE, INTRAVENOUS
     Route: 042
     Dates: start: 20100804, end: 20100804
  3. BUSULFAN [Suspect]
     Indication: STEM CELL TRANSPLANT
     Route: 042
     Dates: start: 20100809, end: 20100812
  4. ETOPOSIDE [Concomitant]
  5. CYCLOPHOSPHAMIDE [Concomitant]
  6. AMITRIPTYLINE HYDROCHLORIDE [Concomitant]
  7. DEXAMETHASONE [Concomitant]
  8. NEXIUM [Concomitant]
  9. ATIVAN [Concomitant]
  10. NICORETTE [Concomitant]
  11. ONDANSETRON [Concomitant]
  12. OXYCODONE HYDROCHLORIDE [Concomitant]
  13. DOCUSATE (DOCUSATE) [Concomitant]
  14. POTASSIUM CHLORIDE [Concomitant]
  15. CIPROFLOXACIN [Concomitant]
  16. DIPHENHYDRAMINE HYDROCHLORIDE [Concomitant]
  17. GI COCKTAIL [Concomitant]
  18. MAGNESUIM CITRATE (MAGNESIUM CITRATE) [Concomitant]
  19. MESNA [Concomitant]
  20. FLEET MINERAL OIL ENEMA (PARAFFIN, LIQUID) [Concomitant]
  21. AMBIEN [Concomitant]
  22. ACETAMINOPHEN [Concomitant]
  23. ACYCLOVIR [Concomitant]
  24. CAMPHOR (CAMPHOR) [Concomitant]
  25. FLUCONAZOLE [Concomitant]
  26. HYDROXYZINE [Concomitant]
  27. MORPHINE [Concomitant]
  28. BEANDRYL/ MAALOX LIDOCAINE [Concomitant]
  29. MAGNESIUM SULFATE [Concomitant]
  30. SODIUM PHOSPHATE (32 P) (SODIUM PHOSPHATE (32 P)) [Concomitant]
  31. VANCOMYCIN [Concomitant]
  32. FENTANYL [Concomitant]
  33. LOPERAMIDE HYDROCHLORIDE [Concomitant]
  34. METOCLOPRAMIDE [Concomitant]
  35. PROMETHAZINE [Concomitant]
  36. SIMETHICONE (SIMETHICONE) [Concomitant]
  37. HYDROCORTONE [Concomitant]

REACTIONS (25)
  - BACTERIAL INFECTION [None]
  - CLOSTRIDIUM COLITIS [None]
  - MULTI-ORGAN FAILURE [None]
  - TACHYPNOEA [None]
  - TACHYCARDIA [None]
  - RENAL FAILURE [None]
  - RESPIRATORY DISTRESS [None]
  - ABDOMINAL COMPARTMENT SYNDROME [None]
  - LACTIC ACIDOSIS [None]
  - URINE OUTPUT DECREASED [None]
  - HEPATIC FUNCTION ABNORMAL [None]
  - HEPATIC CONGESTION [None]
  - ACUTE RESPIRATORY DISTRESS SYNDROME [None]
  - ATRIAL FLUTTER [None]
  - HAEMODYNAMIC INSTABILITY [None]
  - SUPRAVENTRICULAR TACHYCARDIA [None]
  - GASTRIC ULCER [None]
  - PYREXIA [None]
  - PRODUCTIVE COUGH [None]
  - INFLUENZA VIRUS TEST POSITIVE [None]
  - HEPATIC FAILURE [None]
  - MENTAL STATUS CHANGES [None]
  - KLEBSIELLA BACTERAEMIA [None]
  - SEPTIC SHOCK [None]
  - HYPOXIA [None]
